FAERS Safety Report 12610226 (Version 1)
Quarter: 2016Q3

REPORT INFORMATION
  Report Type: Spontaneous
  Country: GB (occurrence: GB)
  Receive Date: 20160801
  Receipt Date: 20160801
  Transmission Date: 20161109
  Serious: Yes (Other)
  Sender: FDA-Public Use
  Company Number: GB-MYLANLABS-2016M1030261

PATIENT

DRUGS (5)
  1. LEVONORGESTREL. [Suspect]
     Active Substance: LEVONORGESTREL
     Indication: CONTRACEPTION
     Dosage: 1 DF, UNK
     Route: 048
     Dates: start: 20160706
  2. VITAMIN D                          /00107901/ [Concomitant]
     Active Substance: ERGOCALCIFEROL
     Dosage: NONE TAKEN THE DAY PRESCRIPTION GIVEN
  3. BIOTIN [Concomitant]
     Active Substance: BIOTIN
     Dosage: NONE TAKEN THE DAY PRESCRIPTION GIVEN
  4. MULTIVITAMIN                       /00097801/ [Concomitant]
     Active Substance: VITAMINS
     Dosage: NONE TAKEN THE DAY PRESCRIPTION GIVEN
  5. CONTRACEPTIVE HD [Concomitant]
     Dosage: FAILED

REACTIONS (4)
  - Influenza like illness [Unknown]
  - Headache [Unknown]
  - Pruritus [Unknown]
  - Malaise [Unknown]

NARRATIVE: CASE EVENT DATE: 20160706
